FAERS Safety Report 11122998 (Version 2)
Quarter: 2015Q3

REPORT INFORMATION
  Report Type: Spontaneous
  Country: US (occurrence: US)
  Receive Date: 20150519
  Receipt Date: 20150717
  Transmission Date: 20151125
  Serious: No
  Sender: FDA-Public Use
  Company Number: US-LUNDBECK-DKLU1111331

PATIENT
  Sex: Female

DRUGS (3)
  1. NORTHERA [Suspect]
     Active Substance: DROXIDOPA
     Indication: AUTONOMIC NEUROPATHY
  2. NORTHERA [Suspect]
     Active Substance: DROXIDOPA
     Indication: ARRHYTHMIA
     Route: 048
     Dates: start: 20150219, end: 20150409
  3. NORTHERA [Suspect]
     Active Substance: DROXIDOPA
     Indication: ORTHOSTATIC HYPOTENSION

REACTIONS (3)
  - Headache [Recovered/Resolved]
  - Fatigue [Unknown]
  - Drug intolerance [Unknown]
